FAERS Safety Report 8353519-5 (Version None)
Quarter: 2012Q2

REPORT INFORMATION
  Report Type: 
  Country: None (occurrence: None)
  Receive Date: 20120511
  Receipt Date: 20110503
  Transmission Date: 20120825
  Serious: No
  Sender: FDA-Public Use
  Company Number: US-GLAXOSMITHKLINE-A0926626A

PATIENT
  Age: 54 Year
  Sex: Female

DRUGS (4)
  1. XELODA [Concomitant]
  2. TYKERB [Suspect]
     Indication: BREAST CANCER
     Dosage: 1250MG PER DAY
     Route: 048
     Dates: start: 20110421
  3. KEPPRA [Concomitant]
  4. VITAMIN B COMPLEX CAP [Concomitant]

REACTIONS (8)
  - SCAB [None]
  - DERMATITIS ACNEIFORM [None]
  - INFECTION [None]
  - HEADACHE [None]
  - PYREXIA [None]
  - DIARRHOEA [None]
  - DYSGEUSIA [None]
  - FATIGUE [None]
